FAERS Safety Report 21467854 (Version 1)
Quarter: 2022Q4

REPORT INFORMATION
  Report Type: Spontaneous
  Country: GB (occurrence: GB)
  Receive Date: 20221017
  Receipt Date: 20221017
  Transmission Date: 20230112
  Serious: Yes (Congenital Anomaly, Other)
  Sender: FDA-Public Use
  Company Number: GB-GLAXOSMITHKLINE-GB2022GSK147277

PATIENT

DRUGS (8)
  1. ASPIRIN [Suspect]
     Active Substance: ASPIRIN
     Indication: Product used for unknown indication
     Dosage: UNK
     Route: 064
  2. ALBUTEROL [Suspect]
     Active Substance: ALBUTEROL
     Indication: Product used for unknown indication
     Dosage: 5 MG, TID (TDS)
     Route: 064
  3. ALBUTEROL [Suspect]
     Active Substance: ALBUTEROL
     Dosage: 8 MG, TID (TDS)
     Route: 064
  4. ALBUTEROL [Suspect]
     Active Substance: ALBUTEROL
     Dosage: 6 MG, TID (TDS)
     Route: 064
  5. ALBUTEROL [Suspect]
     Active Substance: ALBUTEROL
     Dosage: 4 MG, TID (TDS)
     Route: 064
  6. ALBUTEROL [Suspect]
     Active Substance: ALBUTEROL
     Dosage: 2 MG, TID (TDS)
     Route: 064
  7. ALBUTEROL [Suspect]
     Active Substance: ALBUTEROL
     Dosage: 8 MG, 1D (TWO DOSES OF 2 MG AND ONE OF 4 MG PER DAY)
     Route: 064
  8. HYDROXYCHLOROQUINE [Suspect]
     Active Substance: HYDROXYCHLOROQUINE
     Indication: Product used for unknown indication
     Dosage: UNK
     Route: 064

REACTIONS (8)
  - Ventricular extrasystoles [Recovered/Resolved]
  - Heart block congenital [Recovered/Resolved]
  - Supraventricular extrasystoles [Recovered/Resolved]
  - Pericardial effusion [Recovered/Resolved]
  - Cardiomyopathy [Recovered/Resolved]
  - Rhythm idioventricular [Unknown]
  - Premature baby [Unknown]
  - Foetal exposure during pregnancy [Unknown]
